FAERS Safety Report 17093674 (Version 2)
Quarter: 2020Q3

REPORT INFORMATION
  Report Type: Report from Study
  Country: DE (occurrence: DE)
  Receive Date: 20191129
  Receipt Date: 20200911
  Transmission Date: 20201102
  Serious: Yes (Hospitalization, Other)
  Sender: FDA-Public Use
  Company Number: DE-BAXTER-2019BAX024401

PATIENT
  Age: 91 Year
  Sex: Female
  Weight: 48 kg

DRUGS (27)
  1. VINCRISTINE [Suspect]
     Active Substance: VINCRISTINE
     Dosage: (INFUSION RATE :9:00?9:10)
     Route: 041
     Dates: start: 20180405, end: 20180405
  2. CAPTOPRIL HCT [Concomitant]
     Indication: HYPERTENSION
     Route: 048
  3. ENDOXAN 1G [Suspect]
     Active Substance: CYCLOPHOSPHAMIDE
     Route: 041
     Dates: start: 20180315, end: 20180315
  4. ENDOXAN 1G [Suspect]
     Active Substance: CYCLOPHOSPHAMIDE
     Dosage: (INFUSION TIME:11:30?12:30)
     Route: 041
     Dates: start: 20180405, end: 20180405
  5. PREDNISONE. [Suspect]
     Active Substance: PREDNISONE
     Indication: DIFFUSE LARGE B-CELL LYMPHOMA
     Route: 048
     Dates: start: 20180404, end: 20180408
  6. PREDNISONE. [Suspect]
     Active Substance: PREDNISONE
     Route: 048
     Dates: start: 20180426, end: 20180429
  7. KALIUMCHLORID [Concomitant]
     Active Substance: POTASSIUM CHLORIDE
     Indication: HYPOKALAEMIA
     Route: 065
     Dates: start: 20180608, end: 20180611
  8. DOXIL [Suspect]
     Active Substance: DOXORUBICIN HYDROCHLORIDE
     Dosage: (INFUSION TIME 9:30 ?10:30)
     Route: 041
     Dates: start: 20180405, end: 20180405
  9. DOXIL [Suspect]
     Active Substance: DOXORUBICIN HYDROCHLORIDE
     Route: 041
     Dates: start: 20180517, end: 20180517
  10. ENDOXAN 1G [Suspect]
     Active Substance: CYCLOPHOSPHAMIDE
     Route: 041
     Dates: start: 20180426, end: 20180426
  11. RITUXIMAB. [Suspect]
     Active Substance: RITUXIMAB
     Route: 041
     Dates: start: 20180425, end: 20180425
  12. RITUXIMAB. [Suspect]
     Active Substance: RITUXIMAB
     Route: 042
  13. ENDOXAN 1G [Suspect]
     Active Substance: CYCLOPHOSPHAMIDE
     Indication: DIFFUSE LARGE B-CELL LYMPHOMA
     Route: 041
     Dates: start: 20180517, end: 20180517
  14. PEGFILGRASTIM [Concomitant]
     Active Substance: PEGFILGRASTIM
     Indication: PROPHYLAXIS
     Route: 058
     Dates: start: 20180427
  15. VIGANTOLETTEN [Concomitant]
     Active Substance: CHOLECALCIFEROL
     Indication: PROPHYLAXIS
     Route: 048
     Dates: start: 20180314
  16. DOXIL [Suspect]
     Active Substance: DOXORUBICIN HYDROCHLORIDE
     Indication: DIFFUSE LARGE B-CELL LYMPHOMA
     Dosage: UNKNOWN
     Route: 041
     Dates: start: 20180315, end: 20180315
  17. PREDNISONE. [Suspect]
     Active Substance: PREDNISONE
     Route: 048
     Dates: start: 20180315, end: 20180319
  18. RITUXIMAB. [Suspect]
     Active Substance: RITUXIMAB
     Dosage: (INFUSION RATE 100 (ML/MIN) FROM 19:40?22:10
     Route: 041
     Dates: start: 20180314, end: 20180314
  19. KALINOR?BRAUSETABLETTEN [Concomitant]
     Active Substance: POTASSIUM CARBONATE\POTASSIUM CITRATE
     Indication: HYPOKALAEMIA
     Route: 065
     Dates: start: 20180609
  20. DOXIL [Suspect]
     Active Substance: DOXORUBICIN HYDROCHLORIDE
     Route: 041
     Dates: start: 20180426, end: 20180426
  21. RITUXIMAB. [Suspect]
     Active Substance: RITUXIMAB
     Indication: DIFFUSE LARGE B-CELL LYMPHOMA
     Dosage: (INFUSION TIME:15:45?21:15)
     Route: 041
     Dates: start: 20180404, end: 20180404
  22. RITUXIMAB. [Suspect]
     Active Substance: RITUXIMAB
     Route: 041
     Dates: start: 20180517, end: 20180517
  23. ERYTHROZYTEN KONZENTRAT [Concomitant]
     Active Substance: HUMAN RED BLOOD CELL
     Indication: ANAEMIA
     Route: 042
     Dates: start: 20180517, end: 20180517
  24. VINCRISTINE [Suspect]
     Active Substance: VINCRISTINE
     Indication: DIFFUSE LARGE B-CELL LYMPHOMA
     Route: 041
     Dates: start: 20180426, end: 20180426
  25. VINCRISTINE [Suspect]
     Active Substance: VINCRISTINE
     Route: 041
     Dates: start: 20180517, end: 20180517
  26. PREDNISONE. [Suspect]
     Active Substance: PREDNISONE
     Route: 048
     Dates: start: 20180517, end: 20180521
  27. VINCRISTINE [Suspect]
     Active Substance: VINCRISTINE
     Route: 041
     Dates: start: 20180315, end: 20180315

REACTIONS (7)
  - Injury [Recovered/Resolved]
  - Oedema [Not Recovered/Not Resolved]
  - Hypokalaemia [Recovered/Resolved]
  - Abdominal pain lower [Recovered/Resolved]
  - Anaemia [Recovered/Resolved]
  - Subileus [Recovered/Resolved]
  - Abdominal pain [Recovered/Resolved]

NARRATIVE: CASE EVENT DATE: 20180321
